FAERS Safety Report 5927288-X (Version None)
Quarter: 2008Q4

REPORT INFORMATION
  Report Type: 
  Country: None (occurrence: None)
  Receive Date: 20081017
  Receipt Date: 20081003
  Transmission Date: 20090506
  Serious: Yes (Other)
  Sender: FDA-Public Use
  Company Number: 2008US002674

PATIENT
  Age: 10 Year
  Sex: Male

DRUGS (6)
  1. PROGRAF [Suspect]
     Indication: RENAL TRANSPLANT
     Dosage: 5 MG, UID/QD, ORAL
     Route: 048
  2. MYCOPHENOLATE MOFETIL [Concomitant]
  3. PREDNISONE [Concomitant]
  4. ASPIRIN [Concomitant]
  5. LOVASTATIN [Concomitant]
  6. OMEPRAZOLE (OMEPRAZOLE SODIUM) [Concomitant]

REACTIONS (3)
  - AGGRESSION [None]
  - DISTURBANCE IN ATTENTION [None]
  - LOSS OF CONSCIOUSNESS [None]
